FAERS Safety Report 9220966 (Version 2)
Quarter: 2013Q2

REPORT INFORMATION
  Report Type: Spontaneous
  Country: GB (occurrence: GB)
  Receive Date: 20130409
  Receipt Date: 20130424
  Transmission Date: 20140414
  Serious: Yes (Hospitalization)
  Sender: FDA-Public Use
  Company Number: PHHY2013GB033073

PATIENT
  Age: 74 Year
  Sex: Male

DRUGS (8)
  1. WARFARIN [Suspect]
     Indication: DEEP VEIN THROMBOSIS
  2. METRONIDAZOLE [Interacting]
     Indication: INFECTION
     Dosage: 400 MG, TID
  3. FLUCLOXACILLIN [Interacting]
     Dosage: 500 MG, QID
     Route: 048
  4. FLUCLOXACILLIN [Interacting]
     Dosage: 1 G, QID
     Route: 042
  5. CO-AMOXICLAV [Interacting]
     Dosage: 625 MG, TID
  6. PREDNISOLONE [Concomitant]
     Dosage: 60 MG, QD
     Route: 048
  7. PREDNISOLONE [Concomitant]
     Dosage: 10 MG, DAILY
     Route: 048
  8. CLINDAMYCIN [Concomitant]
     Dosage: 600 MG, QID
     Route: 042

REACTIONS (15)
  - Blister [Recovering/Resolving]
  - Skin necrosis [Recovering/Resolving]
  - Skin lesion [Recovering/Resolving]
  - Contusion [Recovering/Resolving]
  - Pain [Recovering/Resolving]
  - Cellulitis [Recovering/Resolving]
  - Pain in extremity [Recovering/Resolving]
  - Oedema peripheral [Recovering/Resolving]
  - Vasculitis [Recovering/Resolving]
  - Skin ulcer [Recovering/Resolving]
  - Haemorrhage [Recovering/Resolving]
  - Thrombosis [Recovering/Resolving]
  - Pyrexia [Recovering/Resolving]
  - Infected skin ulcer [Recovering/Resolving]
  - Staphylococcus test positive [Recovering/Resolving]
